FAERS Safety Report 8772476 (Version 2)
Quarter: 2012Q4

REPORT INFORMATION
  Report Type: Report from Study
  Country: CA (occurrence: CA)
  Receive Date: 20120905
  Receipt Date: 20120913
  Transmission Date: 20130627
  Serious: Yes (Hospitalization, Other)
  Sender: FDA-Public Use
  Company Number: CA-JNJFOC-20120813103

PATIENT
  Age: 54 Year
  Sex: Male
  Weight: 43.8 kg

DRUGS (4)
  1. REMICADE [Suspect]
     Indication: CROHN^S DISEASE
     Route: 042
     Dates: start: 20120706
  2. REMICADE [Suspect]
     Indication: CROHN^S DISEASE
     Route: 042
     Dates: start: 20070125
  3. OXYCONTIN [Concomitant]
     Route: 065
  4. LOMOTIL [Concomitant]
     Dosage: as necessary since stent placement
     Route: 065

REACTIONS (2)
  - Nephrolithiasis [Unknown]
  - Cystitis [Unknown]
